FAERS Safety Report 4755443-3 (Version None)
Quarter: 2005Q3

REPORT INFORMATION
  Report Type: 
  Country: None (occurrence: None)
  Receive Date: 20050826
  Receipt Date: 20050826
  Transmission Date: 20060218
  Serious: Yes (Hospitalization, Other)
  Sender: FDA-Public Use
  Company Number: None

PATIENT
  Age: 67 Year
  Sex: Female

DRUGS (1)
  1. DR. SCHOLL'S EXTRA THICK CALLUS REMOVERS TOPICALS [Suspect]
     Indication: DRUG USE FOR UNKNOWN INDICATION
     Dosage: 2 PADS TOPICAL
     Route: 061
     Dates: start: 20040613, end: 20040613

REACTIONS (7)
  - APPLICATION SITE PAIN [None]
  - CELLULITIS [None]
  - CULTURE WOUND POSITIVE [None]
  - OEDEMA PERIPHERAL [None]
  - SKIN DISCOLOURATION [None]
  - SKIN NECROSIS [None]
  - WALKING AID USER [None]
